FAERS Safety Report 16945376 (Version 1)
Quarter: 2019Q4

REPORT INFORMATION
  Report Type: Spontaneous
  Country: US (occurrence: US)
  Receive Date: 20191021
  Receipt Date: 20191021
  Transmission Date: 20200122
  Serious: Yes (Other)
  Sender: FDA-Public Use
  Company Number: None

PATIENT
  Age: 62 Year
  Sex: Female
  Weight: 54 kg

DRUGS (2)
  1. VALIUM [Suspect]
     Active Substance: DIAZEPAM
     Indication: SLEEP DISORDER
  2. SALMON FISH OIL [Concomitant]

REACTIONS (3)
  - Withdrawal syndrome [None]
  - Iatrogenic injury [None]
  - Bedridden [None]

NARRATIVE: CASE EVENT DATE: 20111011
